FAERS Safety Report 12663061 (Version 5)
Quarter: 2016Q4

REPORT INFORMATION
  Report Type: Spontaneous
  Country: US (occurrence: US)
  Receive Date: 20160818
  Receipt Date: 20161103
  Transmission Date: 20170207
  Serious: Yes (Other)
  Sender: FDA-Public Use
  Company Number: US-009507513-1608USA006431

PATIENT
  Age: 16 Year
  Sex: Female
  Weight: 94.79 kg

DRUGS (2)
  1. NUVARING [Suspect]
     Active Substance: ETHINYL ESTRADIOL\ETONOGESTREL
     Indication: CONTRACEPTION
     Dosage: 0.12/0.015 MG, 3 WEEKS IN, 1 WEEK OUT
     Route: 067
     Dates: start: 201504, end: 20151210
  2. PROZAC [Concomitant]
     Active Substance: FLUOXETINE HYDROCHLORIDE
     Dosage: UNK

REACTIONS (8)
  - Pregnancy with contraceptive device [Recovered/Resolved]
  - Intentional medical device removal by patient [Unknown]
  - Inappropriate schedule of drug administration [Unknown]
  - Medical device site discomfort [Unknown]
  - Inappropriate schedule of drug administration [Unknown]
  - Unintended pregnancy [Recovered/Resolved]
  - Dyspareunia [Unknown]
  - Intentional medical device removal by patient [Unknown]

NARRATIVE: CASE EVENT DATE: 2015
